FAERS Safety Report 19223902 (Version 1)
Quarter: 2021Q2

REPORT INFORMATION
  Report Type: Spontaneous
  Country: US (occurrence: US)
  Receive Date: 20210505
  Receipt Date: 20210505
  Transmission Date: 20210717
  Serious: No
  Sender: FDA-Public Use
  Company Number: US-ROCHE-2596984

PATIENT
  Age: 79 Year
  Sex: Female

DRUGS (5)
  1. OFEV [Concomitant]
     Active Substance: NINTEDANIB
  2. ESBRIET [Suspect]
     Active Substance: PIRFENIDONE
     Indication: IDIOPATHIC PULMONARY FIBROSIS
     Route: 065
     Dates: start: 201908
  3. ESBRIET [Suspect]
     Active Substance: PIRFENIDONE
     Route: 048
     Dates: start: 20200413
  4. ESBRIET [Suspect]
     Active Substance: PIRFENIDONE
     Route: 048
     Dates: start: 20200427
  5. APIXABAN [Concomitant]
     Active Substance: APIXABAN

REACTIONS (9)
  - Ill-defined disorder [Not Recovered/Not Resolved]
  - Intentional product use issue [Unknown]
  - Chest pain [Unknown]
  - Fatigue [Unknown]
  - Melanocytic naevus [Unknown]
  - Pruritus [Unknown]
  - Fall [Unknown]
  - Vision blurred [Not Recovered/Not Resolved]
  - Off label use [Unknown]

NARRATIVE: CASE EVENT DATE: 201908
